FAERS Safety Report 9552016 (Version 1)
Quarter: 2013Q3

REPORT INFORMATION
  Report Type: Spontaneous
  Country: US (occurrence: None)
  Receive Date: 20130923
  Receipt Date: 20130923
  Transmission Date: 20140515
  Serious: Yes (Hospitalization)
  Sender: FDA-Public Use
  Company Number: None

PATIENT
  Sex: Male

DRUGS (1)
  1. LEUKERAN [Suspect]
     Dosage: 2MG. BIDX 3WKS 1 WK OFF
     Route: 048
     Dates: start: 201308, end: 20131220

REACTIONS (2)
  - Abdominal pain upper [None]
  - Fall [None]
